FAERS Safety Report 6910787-1 (Version None)
Quarter: 2010Q3

REPORT INFORMATION
  Report Type: 
  Country: None (occurrence: None)
  Receive Date: 20100716
  Receipt Date: 20091111
  Transmission Date: 20110219
  Serious: Yes (Other)
  Sender: FDA-Public Use
  Company Number: 2009297305

PATIENT
  Age: 50 Year
  Sex: Female
  Weight: 72.6 kg

DRUGS (4)
  1. CELEBREX [Suspect]
     Indication: BACK PAIN
     Dosage: 200 MG, 1X/DAY
     Dates: start: 20091028, end: 20091109
  2. TOPROL-XL [Concomitant]
  3. VITAMINS [Concomitant]
  4. ASPIRIN [Concomitant]

REACTIONS (1)
  - RASH ERYTHEMATOUS [None]
